FAERS Safety Report 9908068 (Version 1)
Quarter: 2014Q1

REPORT INFORMATION
  Report Type: Spontaneous
  Country: US (occurrence: None)
  Receive Date: 20140212
  Receipt Date: 20140212
  Transmission Date: 20141002
  Serious: Yes (Hospitalization)
  Sender: FDA-Public Use
  Company Number: None

PATIENT
  Age: 51 Year
  Sex: Female
  Weight: 106.6 kg

DRUGS (7)
  1. PRESTIQ [Suspect]
     Indication: DEPRESSION
     Dosage: 2 PILLS (BY MOUTH)
     Dates: start: 20141202, end: 20140112
  2. PAMELOR [Concomitant]
  3. LAMICTAL [Concomitant]
  4. ATIVAN [Concomitant]
  5. SEROQUEL [Concomitant]
  6. LANTUS - INSULIN [Concomitant]
  7. MULTIPLE VITAMIN (B-12 FISH OIL, BIOTIN) [Concomitant]

REACTIONS (4)
  - Heart rate increased [None]
  - Mania [None]
  - Agitation [None]
  - Restlessness [None]
